FAERS Safety Report 16422573 (Version 1)
Quarter: 2019Q2

REPORT INFORMATION
  Report Type: Spontaneous
  Country: JP (occurrence: JP)
  Receive Date: 20190612
  Receipt Date: 20190612
  Transmission Date: 20190711
  Serious: Yes (Death, Life-Threatening, Other)
  Sender: FDA-Public Use
  Company Number: JP-PFIZER INC-2019232219

PATIENT
  Age: 77 Year
  Sex: Male
  Weight: 55 kg

DRUGS (6)
  1. METHYLPREDNISOLONE SODIUM SUCCINATE. [Suspect]
     Active Substance: METHYLPREDNISOLONE SODIUM SUCCINATE
     Indication: ACUTE HEPATIC FAILURE
     Dosage: 60 MG, DAILY (1 MG/KG)
     Dates: start: 2017
  2. IPILIMUMAB [Concomitant]
     Active Substance: IPILIMUMAB
     Indication: MALIGNANT MELANOMA STAGE III
  3. IPILIMUMAB [Concomitant]
     Active Substance: IPILIMUMAB
     Indication: METASTASES TO LYMPH NODES
  4. URSODEOXYCHOLIC ACID [Concomitant]
     Active Substance: URSODIOL
     Dosage: 600 MG, UNK
     Dates: start: 2017
  5. IPILIMUMAB [Concomitant]
     Active Substance: IPILIMUMAB
     Indication: LYMPHADENOPATHY
     Dosage: UNK
     Dates: start: 201707
  6. METHYLPREDNISOLONE SODIUM SUCCINATE. [Suspect]
     Active Substance: METHYLPREDNISOLONE SODIUM SUCCINATE
     Dosage: 500 MG, DAILY

REACTIONS (2)
  - Sepsis [Fatal]
  - Drug resistance [Unknown]
